FAERS Safety Report 20328542 (Version 2)
Quarter: 2022Q2

REPORT INFORMATION
  Report Type: Spontaneous
  Country: US (occurrence: US)
  Receive Date: 20220112
  Receipt Date: 20220603
  Transmission Date: 20220721
  Serious: No
  Sender: FDA-Public Use
  Company Number: US-ELI_LILLY_AND_COMPANY-US202201003076

PATIENT
  Age: 67 Year
  Sex: Female

DRUGS (4)
  1. VERZENIO [Suspect]
     Active Substance: ABEMACICLIB
     Indication: Breast cancer
     Dosage: 150 MG, BID
     Route: 048
     Dates: start: 20211208, end: 20211227
  2. VERZENIO [Suspect]
     Active Substance: ABEMACICLIB
     Dosage: 50 MG, UNKNOWN
     Route: 048
     Dates: start: 20220121
  3. IMODIUM [Suspect]
     Active Substance: LOPERAMIDE HYDROCHLORIDE
     Indication: Diarrhoea
     Dosage: UNK UNK, UNKNOWN
     Route: 065
  4. LOPERAMIDE HYDROCHLORIDE [Suspect]
     Active Substance: LOPERAMIDE HYDROCHLORIDE
     Indication: Product used for unknown indication
     Dosage: UNK UNK, UNKNOWN
     Route: 065

REACTIONS (7)
  - Abdominal discomfort [Recovered/Resolved]
  - Muscle spasms [Recovered/Resolved]
  - Muscle spasms [Recovered/Resolved]
  - Constipation [Not Recovered/Not Resolved]
  - Diarrhoea [Recovered/Resolved]
  - Decreased appetite [Recovered/Resolved]
  - Diarrhoea [Recovered/Resolved]

NARRATIVE: CASE EVENT DATE: 20211211
